FAERS Safety Report 6010720-3 (Version None)
Quarter: 2008Q4

REPORT INFORMATION
  Report Type: 
  Country: None (occurrence: None)
  Receive Date: 20081218
  Receipt Date: 20071211
  Transmission Date: 20090506
  Serious: No
  Sender: FDA-Public Use
  Company Number: US-AMGEN-KDL256504

PATIENT
  Sex: Female

DRUGS (2)
  1. ENBREL [Suspect]
     Indication: RHEUMATOID ARTHRITIS
     Route: 058
     Dates: start: 20070907
  2. METHOTREXATE [Concomitant]
     Route: 058

REACTIONS (9)
  - ALOPECIA [None]
  - HEADACHE [None]
  - INJECTION SITE HAEMATOMA [None]
  - INJECTION SITE IRRITATION [None]
  - INSOMNIA [None]
  - MOUTH ULCERATION [None]
  - NAUSEA [None]
  - OEDEMA PERIPHERAL [None]
  - WEIGHT INCREASED [None]
